FAERS Safety Report 11567371 (Version 1)
Quarter: 2015Q3

REPORT INFORMATION
  Report Type: Spontaneous
  Country: US (occurrence: US)
  Receive Date: 20150916
  Receipt Date: 20150916
  Transmission Date: 20151125
  Serious: No
  Sender: FDA-Public Use
  Company Number: US-ELI_LILLY_AND_COMPANY-US200907004209

PATIENT
  Sex: Male

DRUGS (2)
  1. TRAMADOL. [Concomitant]
     Active Substance: TRAMADOL
     Indication: PAIN
  2. FORTEO [Suspect]
     Active Substance: TERIPARATIDE

REACTIONS (2)
  - Muscle spasms [Unknown]
  - Drug interaction [Unknown]
